FAERS Safety Report 9688011 (Version 2)
Quarter: 2013Q4

REPORT INFORMATION
  Report Type: Report from Study
  Country: US (occurrence: US)
  Receive Date: 20131114
  Receipt Date: 20131120
  Transmission Date: 20140711
  Serious: Yes (Death, Hospitalization, Other)
  Sender: FDA-Public Use
  Company Number: US-ASTELLAS-2013US011792

PATIENT
  Age: 84 Year
  Sex: Male

DRUGS (11)
  1. ERLOTINIB TABLET [Suspect]
     Indication: NON-SMALL CELL LUNG CANCER
     Dosage: 150 MG, QOD
     Route: 048
     Dates: start: 20131011, end: 20131012
  2. VALIUM /00017001/ [Suspect]
     Indication: INSOMNIA
     Dosage: 5 MG, AT BEDTIME
     Route: 048
  3. LONOX [Concomitant]
     Indication: PRODUCT USED FOR UNKNOWN INDICATION
     Dosage: UNK
     Route: 065
  4. CITALOPRAM [Concomitant]
     Indication: PRODUCT USED FOR UNKNOWN INDICATION
     Dosage: UNK
     Route: 065
  5. MIRALAX                            /00754501/ [Concomitant]
     Indication: PRODUCT USED FOR UNKNOWN INDICATION
     Dosage: UNK
     Route: 065
  6. KEPPRA [Concomitant]
     Indication: PRODUCT USED FOR UNKNOWN INDICATION
     Dosage: UNK
     Route: 065
  7. DECADRON                           /00016001/ [Concomitant]
     Indication: PRODUCT USED FOR UNKNOWN INDICATION
     Dosage: UNK
     Route: 065
  8. CELEXA                             /00582602/ [Concomitant]
     Indication: PRODUCT USED FOR UNKNOWN INDICATION
     Dosage: UNK
     Route: 065
  9. NAMENDA [Concomitant]
     Indication: PRODUCT USED FOR UNKNOWN INDICATION
     Dosage: UNK
     Route: 065
  10. REMERON [Concomitant]
     Indication: PRODUCT USED FOR UNKNOWN INDICATION
     Dosage: UNK
     Route: 065
  11. ROXANOL [Concomitant]
     Indication: PRODUCT USED FOR UNKNOWN INDICATION
     Dosage: UNK
     Route: 065

REACTIONS (5)
  - Inappropriate schedule of drug administration [Unknown]
  - Confusional state [Unknown]
  - Metastases to central nervous system [Unknown]
  - General physical health deterioration [Unknown]
  - Convulsion [Fatal]
